FAERS Safety Report 7010343-3 (Version None)
Quarter: 2010Q3

REPORT INFORMATION
  Report Type: 
  Country: None (occurrence: None)
  Receive Date: 20100923
  Receipt Date: 20100915
  Transmission Date: 20110219
  Serious: Yes (Death)
  Sender: FDA-Public Use
  Company Number: A0881823A

PATIENT
  Age: 55 Year
  Sex: Male

DRUGS (10)
  1. TOSITUMOMAB [Suspect]
     Indication: NON-HODGKIN'S LYMPHOMA
     Dosage: 450MG SINGLE DOSE
     Route: 042
     Dates: start: 20010801
  2. IODINE I 131 TOSITUMOMAB [Suspect]
     Indication: NON-HODGKIN'S LYMPHOMA
     Dosage: 5MCI SINGLE DOSE
     Route: 042
     Dates: start: 20010801
  3. TOSITUMOMAB [Suspect]
     Dosage: 450MG SINGLE DOSE
     Route: 042
     Dates: start: 20010808
  4. IODINE I 131 TOSITUMOMAB [Suspect]
     Dosage: 120.68MCI SINGLE DOSE
     Route: 042
     Dates: start: 20010808
  5. TOSITUMOMAB [Suspect]
     Dosage: 450MG SINGLE DOSE
     Route: 042
     Dates: start: 19990218
  6. IODINE I 131 TOSITUMOMAB [Suspect]
     Dosage: 5MCI SINGLE DOSE
     Route: 042
     Dates: start: 19990218
  7. TOSITUMOMAB [Suspect]
     Dosage: 450MG SINGLE DOSE
     Route: 042
     Dates: start: 19990225
  8. IODINE I 131 TOSITUMOMAB [Suspect]
     Dosage: 922MCI SINGLE DOSE
     Route: 042
     Dates: start: 19990225
  9. RITUXAN [Concomitant]
  10. RADIOTHERAPY [Concomitant]

REACTIONS (1)
  - MYELODYSPLASTIC SYNDROME [None]
